FAERS Safety Report 21967146 (Version 1)
Quarter: 2023Q1

REPORT INFORMATION
  Report Type: Spontaneous
  Country: AU (occurrence: AU)
  Receive Date: 20230208
  Receipt Date: 20230208
  Transmission Date: 20230418
  Serious: Yes (Hospitalization)
  Sender: FDA-Public Use
  Company Number: AU-MYLANLABS-2023M1013360

PATIENT
  Age: 48 Year
  Sex: Male

DRUGS (2)
  1. OLANZAPINE [Suspect]
     Active Substance: OLANZAPINE
     Indication: Product used for unknown indication
     Dosage: 210 MILLIGRAM, RECEIVED DEPOT INJECTION
     Route: 030
  2. BENZTROPINE [Suspect]
     Active Substance: BENZTROPINE
     Indication: Product used for unknown indication
     Dosage: 2 MILLIGRAM, RECEIVED 2 MG IN 1 MG ALIQUOTS
     Route: 065

REACTIONS (3)
  - Post-injection delirium sedation syndrome [Unknown]
  - Rhabdomyolysis [Unknown]
  - Acute kidney injury [Unknown]
